FAERS Safety Report 12769269 (Version 2)
Quarter: 2016Q4

REPORT INFORMATION
  Report Type: Spontaneous
  Country: US (occurrence: US)
  Receive Date: 20160921
  Receipt Date: 20161010
  Transmission Date: 20170207
  Serious: Yes (Hospitalization, Other)
  Sender: FDA-Public Use
  Company Number: US-SMITH AND NEPHEW, INC-2016SMT00806

PATIENT
  Age: 32 Year
  Sex: Female
  Weight: 83.45 kg

DRUGS (3)
  1. REGRANEX [Suspect]
     Active Substance: BECAPLERMIN
     Indication: PROMOTION OF WOUND HEALING
     Dosage: UNK UNK, 1X/DAY
     Route: 061
     Dates: start: 201608, end: 20160826
  2. REGRANEX [Suspect]
     Active Substance: BECAPLERMIN
     Dosage: UNK UNK, 1X/DAY
     Route: 061
     Dates: start: 201609
  3. LANTUS [Concomitant]
     Active Substance: INSULIN GLARGINE
     Dosage: 10 U, 2X/DAY

REACTIONS (6)
  - Pyrexia [Not Recovered/Not Resolved]
  - Toe amputation [Recovered/Resolved with Sequelae]
  - Osteomyelitis [Recovered/Resolved]
  - Cellulitis [Unknown]
  - Pain [Unknown]
  - Culture wound positive [Unknown]

NARRATIVE: CASE EVENT DATE: 2016
